FAERS Safety Report 10185429 (Version 1)
Quarter: 2014Q2

REPORT INFORMATION
  Report Type: Spontaneous
  Country: US (occurrence: US)
  Receive Date: 20140521
  Receipt Date: 20140521
  Transmission Date: 20141212
  Serious: No
  Sender: FDA-Public Use
  Company Number: US-PFIZER INC-2014138509

PATIENT
  Age: 54 Year
  Sex: Female
  Weight: 118 kg

DRUGS (3)
  1. LEVOXYL [Suspect]
     Indication: HYPOTHYROIDISM
     Dosage: 112 UG, DAILY
     Dates: start: 2004, end: 2013
  2. LEVOXYL [Suspect]
     Dosage: 112 UG, UNK
     Dates: start: 2014, end: 20140516
  3. ABILIFY [Concomitant]
     Indication: TOURETTE^S DISORDER
     Dosage: 20 MG, DAILY

REACTIONS (1)
  - Headache [Not Recovered/Not Resolved]
